FAERS Safety Report 15613349 (Version 1)
Quarter: 2018Q4

REPORT INFORMATION
  Report Type: Report from Study
  Country: US (occurrence: US)
  Receive Date: 20181113
  Receipt Date: 20181113
  Transmission Date: 20190205
  Serious: Yes (Hospitalization)
  Sender: FDA-Public Use
  Company Number: US-ROCHE-2210773

PATIENT
  Age: 69 Year
  Sex: Male
  Weight: 70.8 kg

DRUGS (3)
  1. CARBOPLATIN. [Suspect]
     Active Substance: CARBOPLATIN
     Indication: NON-SMALL CELL LUNG CANCER
     Dosage: AREA UNDER THE CURVE (AUC) 6 ON DAY 1 OF A 21-DAY CYCLE FOR 4 - 6 CYCLES.?4 DOSES OF CARBOPLATIN COM
     Route: 065
     Dates: start: 20180417
  2. PEMETREXED. [Suspect]
     Active Substance: PEMETREXED
     Indication: NON-SMALL CELL LUNG CANCER
     Dosage: 500 MG/M^2 ON DAY 1 OF A 21-DAY CYCLE FOR 4 - 6 CYCLES.?4 DOSES OF PEMETREXED COMPLETED. LAST DOSE:
     Route: 065
     Dates: start: 20180417
  3. PIRFENIDONE. [Suspect]
     Active Substance: PIRFENIDONE
     Indication: NON-SMALL CELL LUNG CANCER
     Dosage: DOSE ESCALATION: LEVEL 1:ONE CAPSULE (TOTAL DAILY DOSE 801 MG); LEVEL 2: TWO CAPSULES (TOTAL DAILY D
     Route: 048
     Dates: start: 20180417

REACTIONS (4)
  - Nausea [Unknown]
  - Vomiting [Unknown]
  - Abdominal pain [Unknown]
  - Constipation [Unknown]

NARRATIVE: CASE EVENT DATE: 20180625
